FAERS Safety Report 4727201-7 (Version None)
Quarter: 2005Q3

REPORT INFORMATION
  Report Type: 
  Country: None (occurrence: None)
  Receive Date: 20050726
  Receipt Date: 20050726
  Transmission Date: 20060218
  Serious: Yes (Hospitalization)
  Sender: FDA-Public Use
  Company Number: None

PATIENT
  Age: 54 Year
  Sex: Male
  Weight: 98.4 kg

DRUGS (4)
  1. CLINDAMYCIN [Suspect]
  2. CLINDAMYCIN [Concomitant]
  3. PEGINTERFERON ALFA-2A [Concomitant]
  4. RIBAVIRIN [Concomitant]

REACTIONS (1)
  - DIARRHOEA [None]
